FAERS Safety Report 8043404-0 (Version None)
Quarter: 2011Q4

REPORT INFORMATION
  Report Type: 
  Country: None (occurrence: None)
  Receive Date: 20111209
  Receipt Date: 20111104
  Transmission Date: 20120403
  Serious: No
  Sender: FDA-Public Use
  Company Number: 2011SP052109

PATIENT
  Age: 61 Year
  Sex: Male

DRUGS (3)
  1. RIBAVIRIN [Suspect]
     Indication: HEPATITIS C
     Dosage: 600 MG;BID
     Dates: start: 20111003, end: 20111013
  2. PEG-INTRON [Suspect]
     Indication: HEPATITIS C
     Dosage: 150 MCG;QW
     Dates: start: 20111003, end: 20111013
  3. VICTRELIS [Suspect]
     Indication: HEPATITIS C
     Dosage: 800 MG;BID
     Dates: start: 20111003, end: 20111013

REACTIONS (2)
  - PLATELET COUNT DECREASED [None]
  - UNDERDOSE [None]
